APPROVED DRUG PRODUCT: PRILOCAINE HYDROCHLORIDE AND EPINEPHRINE BITARTRATE
Active Ingredient: EPINEPHRINE BITARTRATE; PRILOCAINE HYDROCHLORIDE
Strength: 0.005MG/ML;4%
Dosage Form/Route: INJECTABLE;INJECTION
Application: A078959 | Product #001 | TE Code: AP
Applicant: SEPTODONT INC
Approved: Aug 30, 2011 | RLD: No | RS: No | Type: RX